FAERS Safety Report 4741437-0 (Version None)
Quarter: 2005Q3

REPORT INFORMATION
  Report Type: 
  Country: None (occurrence: None)
  Receive Date: 20050808
  Receipt Date: 20050728
  Transmission Date: 20060218
  Serious: Yes (Other)
  Sender: FDA-Public Use
  Company Number: 2005098165

PATIENT
  Age: 28 Year
  Sex: Female

DRUGS (1)
  1. GEODON [Suspect]
     Indication: HALLUCINATION, AUDITORY
     Dosage: ORAL
     Route: 048
     Dates: start: 20050321, end: 20050527

REACTIONS (3)
  - DECREASED IMMUNE RESPONSIVENESS [None]
  - UPPER RESPIRATORY TRACT INFECTION [None]
  - VIRAL INFECTION [None]
